FAERS Safety Report 5004115-9 (Version None)
Quarter: 2006Q2

REPORT INFORMATION
  Report Type: 
  Country: None (occurrence: None)
  Receive Date: 20060511
  Receipt Date: 20060502
  Transmission Date: 20061013
  Serious: Yes (Other)
  Sender: FDA-Public Use
  Company Number: 2006059124

PATIENT
  Age: 88 Year

DRUGS (2)
  1. PROCARDIA XL [Suspect]
     Indication: ANGINA PECTORIS
     Dosage: 30 MG, ORAL
     Route: 048
  2. NEXIUM [Concomitant]

REACTIONS (5)
  - ABDOMINAL DISTENSION [None]
  - BARRETT'S OESOPHAGUS [None]
  - FLATULENCE [None]
  - GASTRIC DISORDER [None]
  - HIATUS HERNIA [None]
